FAERS Safety Report 16784876 (Version 1)
Quarter: 2019Q3

REPORT INFORMATION
  Report Type: Spontaneous
  Country: PT (occurrence: PT)
  Receive Date: 20190909
  Receipt Date: 20190909
  Transmission Date: 20191005
  Serious: Yes (Other)
  Sender: FDA-Public Use
  Company Number: PT-SCIEGEN PHARMACEUTICALS INC-2019SCILIT00252

PATIENT
  Age: 48 Year
  Sex: Female

DRUGS (12)
  1. ETHINYLESTRADIOL + GESTODENE [Interacting]
     Active Substance: ETHINYL ESTRADIOL\GESTODENE
  2. METFORMIN HYDROCHLORIDETABLETS [Suspect]
     Active Substance: METFORMIN HYDROCHLORIDE
  3. CHLORDIAZEPOXIDE. [Interacting]
     Active Substance: CHLORDIAZEPOXIDE
  4. PHENOLPHTHALEIN [Interacting]
     Active Substance: PHENOLPHTHALEIN
  5. CENTELLA ASIATICA [Interacting]
     Active Substance: CENTELLA ASIATICA
  6. SENNA [Interacting]
     Active Substance: SENNA LEAF\SENNOSIDES\SENNOSIDES A AND B
  7. BUPROPION HYDROCHLORIDE. [Interacting]
     Active Substance: BUPROPION HYDROCHLORIDE
  8. CHROMIUM PICOLINATE [Interacting]
     Active Substance: CHROMIUM PICOLINATE
  9. ORLISTAT. [Interacting]
     Active Substance: ORLISTAT
  10. CASCARA SAGRADA [Interacting]
     Active Substance: FRANGULA PURSHIANA BARK
  11. TOPIRAMATE. [Interacting]
     Active Substance: TOPIRAMATE
  12. FUROSEMIDE. [Interacting]
     Active Substance: FUROSEMIDE

REACTIONS (4)
  - Product use in unapproved indication [Unknown]
  - Intentional product misuse [Unknown]
  - Cerebral venous thrombosis [Unknown]
  - Drug interaction [Unknown]
